FAERS Safety Report 15487838 (Version 3)
Quarter: 2020Q1

REPORT INFORMATION
  Report Type: Report from Study
  Country: US (occurrence: US)
  Receive Date: 20181011
  Receipt Date: 20200121
  Transmission Date: 20200409
  Serious: No
  Sender: FDA-Public Use
  Company Number: PHEH2018US042927

PATIENT
  Sex: Male

DRUGS (1)
  1. ENTRESTO [Suspect]
     Active Substance: SACUBITRIL\VALSARTAN
     Indication: CARDIAC FAILURE CHRONIC
     Dosage: 50 MG(24/26MG), UNK
     Route: 065

REACTIONS (4)
  - Malaise [Unknown]
  - Asthenia [Unknown]
  - Hypotension [Recovered/Resolved]
  - Fatigue [Unknown]
